FAERS Safety Report 11776898 (Version 4)
Quarter: 2015Q4

REPORT INFORMATION
  Report Type: Spontaneous
  Country: IN (occurrence: IN)
  Receive Date: 20151125
  Receipt Date: 20151204
  Transmission Date: 20160304
  Serious: Yes (Other)
  Sender: FDA-Public Use
  Company Number: IN-ACTAVIS-2015-25431

PATIENT
  Age: 49 Year
  Sex: Male

DRUGS (3)
  1. DIAZEPAM (WATSON LABORATORIES) [Interacting]
     Active Substance: DIAZEPAM
     Indication: GENERALISED TONIC-CLONIC SEIZURE
     Dosage: 5 MG, BID
     Route: 048
  2. PHENYTOIN. [Interacting]
     Active Substance: PHENYTOIN
     Indication: GENERALISED TONIC-CLONIC SEIZURE
     Dosage: 100 MG, BID
     Route: 051
  3. RANITIDINE [Suspect]
     Active Substance: RANITIDINE\RANITIDINE HYDROCHLORIDE
     Indication: PROPHYLAXIS
     Dosage: 50 MG, BID
     Route: 051

REACTIONS (5)
  - Pyrexia [Recovering/Resolving]
  - Drug interaction [Recovered/Resolved]
  - Hypersensitivity [Recovering/Resolving]
  - Rash erythematous [Recovering/Resolving]
  - Blister [Recovering/Resolving]
